FAERS Safety Report 4318311-7 (Version None)
Quarter: 2004Q1

REPORT INFORMATION
  Report Type: 
  Country: None (occurrence: None)
  Receive Date: 20040317
  Receipt Date: 20000724
  Transmission Date: 20041129
  Serious: Yes (Hospitalization, Disabling)
  Sender: FDA-Public Use
  Company Number: WAES 00072225

PATIENT
  Age: 49 Year
  Sex: Female

DRUGS (6)
  1. TYLENOL (CAPLET) [Concomitant]
  2. TYLENOL W/ CODEINE [Concomitant]
  3. ALCOHOL [Suspect]
  4. VIOXX [Suspect]
     Indication: OSTEOARTHRITIS
     Route: 048
     Dates: start: 20000622, end: 20000721
  5. VIOXX [Suspect]
     Indication: MENISCUS LESION
     Route: 048
     Dates: start: 20000622, end: 20000721
  6. AMBIEN [Concomitant]
     Indication: INSOMNIA

REACTIONS (4)
  - ANAL HAEMORRHAGE [None]
  - DEPRESSION [None]
  - GASTRIC ULCER HAEMORRHAGE [None]
  - HYPERTENSION [None]
